FAERS Safety Report 6882117-5 (Version None)
Quarter: 2010Q3

REPORT INFORMATION
  Report Type: 
  Country: None (occurrence: None)
  Receive Date: 20100727
  Receipt Date: 20100714
  Transmission Date: 20110219
  Serious: Yes (Hospitalization)
  Sender: FDA-Public Use
  Company Number: 015622

PATIENT
  Sex: Female

DRUGS (9)
  1. KEPPRA [Suspect]
     Indication: CONVULSION
     Dosage: 500 MG BID, 750 MG BID, 1000 MG BID
     Dates: start: 20100301
  2. KEPPRA [Suspect]
     Indication: CONVULSION
     Dosage: 500 MG BID, 750 MG BID, 1000 MG BID
     Dates: start: 20100601
  3. KEPPRA [Suspect]
     Indication: CONVULSION
     Dosage: 500 MG BID, 750 MG BID, 1000 MG BID
     Dates: start: 20100701
  4. LORTAB [Concomitant]
  5. PERCOCET [Concomitant]
  6. ROBITUSSIN WITH CODEINE /01683401/ [Concomitant]
  7. ZITHROMAX [Concomitant]
  8. SUDAFED /00076302/ [Concomitant]
  9. MOM [Concomitant]

REACTIONS (3)
  - CAESAREAN SECTION [None]
  - CONVULSION [None]
  - DRUG EXPOSURE DURING PREGNANCY [None]
